FAERS Safety Report 18678569 (Version 1)
Quarter: 2020Q4

REPORT INFORMATION
  Report Type: Report from Study
  Country: US (occurrence: US)
  Receive Date: 20201229
  Receipt Date: 20201229
  Transmission Date: 20210114
  Serious: Yes (Other)
  Sender: FDA-Public Use
  Company Number: US-ASTRAZENECA-2020SF53422

PATIENT
  Age: 26431 Day
  Sex: Female
  Weight: 69.4 kg

DRUGS (3)
  1. LYNPARZA [Suspect]
     Active Substance: OLAPARIB
     Indication: OVARIAN CANCER
     Dosage: 150.0MG UNKNOWN
     Route: 048
     Dates: start: 20200615, end: 20200707
  2. LYNPARZA [Suspect]
     Active Substance: OLAPARIB
     Indication: OVARIAN CANCER
     Dosage: 2.0DF UNKNOWN
     Route: 048
     Dates: end: 20201111
  3. LYNPARZA [Suspect]
     Active Substance: OLAPARIB
     Indication: OVARIAN CANCER
     Dosage: 100.0MG UNKNOWN
     Route: 048
     Dates: start: 20200805, end: 20200810

REACTIONS (1)
  - Blood count abnormal [Recovering/Resolving]

NARRATIVE: CASE EVENT DATE: 20200819
